FAERS Safety Report 12602685 (Version 2)
Quarter: 2016Q4

REPORT INFORMATION
  Report Type: Report from Study
  Country: AU (occurrence: AU)
  Receive Date: 20160728
  Receipt Date: 20161110
  Transmission Date: 20170207
  Serious: Yes (Other)
  Sender: FDA-Public Use
  Company Number: AU-REGENERON PHARMACEUTICALS, INC.-2016-19757

PATIENT

DRUGS (1)
  1. EYLEA [Suspect]
     Active Substance: AFLIBERCEPT
     Indication: NEOVASCULAR AGE-RELATED MACULAR DEGENERATION
     Dosage: 2 MG, EVERY 8 WEEKS
     Route: 031
     Dates: start: 201408

REACTIONS (4)
  - Cataract operation [Recovered/Resolved]
  - Depression [Unknown]
  - Visual acuity reduced [Unknown]
  - Product use issue [Unknown]

NARRATIVE: CASE EVENT DATE: 20151209
